FAERS Safety Report 12130189 (Version 1)
Quarter: 2016Q1

REPORT INFORMATION
  Report Type: Spontaneous
  Country: US (occurrence: None)
  Receive Date: 20160229
  Receipt Date: 20160229
  Transmission Date: 20160526
  Serious: Yes (Disabling)
  Sender: FDA-Public Use
  Company Number: None

PATIENT
  Age: 45 Year
  Sex: Female
  Weight: 59.42 kg

DRUGS (6)
  1. MULTI VITAMINS [Concomitant]
  2. GLUTATHIONE LOTION [Concomitant]
  3. FLUCONAZOLE. [Concomitant]
     Active Substance: FLUCONAZOLE
  4. VITAMIN B12 [Concomitant]
     Active Substance: CYANOCOBALAMIN
  5. CIPROFLOXACIN 500 MG COBALT MAN/HDD/HDD [Suspect]
     Active Substance: CIPROFLOXACIN
     Indication: KIDNEY INFECTION
     Dosage: 1 PILL TWICE DAILY TAKEN BY MOUTH
     Route: 048
     Dates: start: 20160225, end: 20160227
  6. MILK THISTLE [Concomitant]
     Active Substance: MILK THISTLE

REACTIONS (3)
  - Disturbance in attention [None]
  - Sensory disturbance [None]
  - Ocular discomfort [None]

NARRATIVE: CASE EVENT DATE: 20160227
